FAERS Safety Report 7427178-X (Version None)
Quarter: 2011Q2

REPORT INFORMATION
  Report Type: 
  Country: None (occurrence: None)
  Receive Date: 20110420
  Receipt Date: 20110411
  Transmission Date: 20111010
  Serious: Yes (Other)
  Sender: FDA-Public Use
  Company Number: GB-JNJFOC-20110309613

PATIENT
  Sex: Male

DRUGS (1)
  1. NICORETTE ORIGINAL [Suspect]
     Indication: PRODUCT USED FOR UNKNOWN INDICATION
     Route: 048

REACTIONS (3)
  - OVERDOSE [None]
  - INCORRECT DRUG ADMINISTRATION DURATION [None]
  - DEPENDENCE [None]
